FAERS Safety Report 6894368-4 (Version None)
Quarter: 2010Q3

REPORT INFORMATION
  Report Type: 
  Country: None (occurrence: None)
  Receive Date: 20100727
  Receipt Date: 20100712
  Transmission Date: 20110219
  Serious: Yes (Hospitalization)
  Sender: FDA-Public Use
  Company Number: DSM-2010-01050

PATIENT
  Age: 77 Year
  Sex: Female

DRUGS (8)
  1. BALZAK (OLMESARTAN MEDOXOMIL, AMLODIPINE BESILATE) (TABLET) (OLMESARTA [Suspect]
     Indication: PRODUCT USED FOR UNKNOWN INDICATION
     Dosage: 40/10 MG (1 IN 1 D),ORAL
     Route: 048
     Dates: start: 20100101, end: 20100329
  2. ALDACTONE [Suspect]
     Indication: PRODUCT USED FOR UNKNOWN INDICATION
     Dosage: 12.5 MG (12.5 MG,1 IN 1 D),ORAL
     Route: 048
     Dates: start: 20100101, end: 20100329
  3. OMEPRAZOL (OMEPRAZOLE) (OMEPRAZOLE) [Concomitant]
  4. DEXNON (LEVOTHYROXINE SODIUM) (LEVOTHYROXINE SODIUM) [Concomitant]
  5. MIXTARD 30 (INSULIN HUMAN INJECTION, ISOPHANE) (INSULIN HUMAN INJECTIO [Concomitant]
  6. ORFIDAL (LORAZEPAM) (LORAZEPAM) [Concomitant]
  7. SEGURIL (FUROSEMIDE) (FUROSEMIDE) [Concomitant]
  8. SINTROM (ACENOCOUMAROL) (ACENOCOUMAROL) [Concomitant]

REACTIONS (3)
  - BLOOD CREATININE INCREASED [None]
  - DRUG INTERACTION [None]
  - HYPERKALAEMIA [None]
